FAERS Safety Report 4427186-7 (Version None)
Quarter: 2004Q3

REPORT INFORMATION
  Report Type: 
  Country: None (occurrence: None)
  Receive Date: 20040726
  Receipt Date: 20040504
  Transmission Date: 20050211
  Serious: Yes (Hospitalization, Other)
  Sender: FDA-Public Use
  Company Number: USA031049106

PATIENT
  Age: 71 Year
  Sex: Female

DRUGS (2)
  1. FORTEO [Suspect]
     Indication: OSTEOPOROSIS
     Dates: start: 20030818
  2. IMDUR [Concomitant]

REACTIONS (14)
  - ABDOMINAL PAIN UPPER [None]
  - COUGH [None]
  - DYSPNOEA [None]
  - DYSURIA [None]
  - FAECAL INCONTINENCE [None]
  - FEELING ABNORMAL [None]
  - HEART RATE INCREASED [None]
  - MUSCLE CRAMP [None]
  - NAUSEA [None]
  - OVERDOSE [None]
  - SNEEZING [None]
  - URINARY INCONTINENCE [None]
  - URINARY TRACT INFECTION [None]
  - VIRAL INFECTION [None]
